FAERS Safety Report 8119176-8 (Version None)
Quarter: 2012Q1

REPORT INFORMATION
  Report Type: 
  Country: None (occurrence: None)
  Receive Date: 20120207
  Receipt Date: 20120123
  Transmission Date: 20120608
  Serious: Yes (Death, Hospitalization)
  Sender: FDA-Public Use
  Company Number: US-ROCHE-802539

PATIENT
  Sex: Female
  Weight: 59.8 kg

DRUGS (6)
  1. HERCEPTIN [Suspect]
     Indication: BREAST CANCER METASTATIC
  2. CARBOPLATIN [Suspect]
     Indication: BREAST CANCER METASTATIC
  3. DEXAMETHASONE [Concomitant]
     Route: 048
  4. AVASTIN [Suspect]
     Indication: BREAST CANCER METASTATIC
  5. LEVOTHYROXINE SODIUM [Concomitant]
     Route: 048
  6. LORAZEPAM [Concomitant]
     Route: 048

REACTIONS (1)
  - PNEUMOTHORAX [None]
